FAERS Safety Report 9021108 (Version 1)
Quarter: 2013Q1

REPORT INFORMATION
  Report Type: Spontaneous
  Country: US (occurrence: US)
  Receive Date: 20130119
  Receipt Date: 20130119
  Transmission Date: 20140127
  Serious: No
  Sender: FDA-Public Use
  Company Number: US-ALLERGAN-1204055US

PATIENT
  Age: 39 Year
  Sex: Female

DRUGS (4)
  1. BOTOX? [Suspect]
     Indication: HYPERHIDROSIS
     Dosage: 15 UNITS TO EACH AXILLARY REGION
     Route: 030
     Dates: start: 20120320, end: 20120320
  2. BOTOX? [Suspect]
     Indication: SKIN WRINKLING
     Dosage: 20 UNITS, SINGLE
     Route: 030
     Dates: start: 20120320, end: 20120320
  3. BOTOX COSMETIC [Suspect]
     Indication: SKIN WRINKLING
     Dosage: 20 UNITS, SINGLE
     Route: 030
     Dates: start: 20120320, end: 20120320
  4. VITAMINS [Concomitant]
     Indication: PRODUCT USED FOR UNKNOWN INDICATION

REACTIONS (2)
  - Rash [Unknown]
  - Rash [Unknown]
